FAERS Safety Report 17802392 (Version 1)
Quarter: 2020Q2

REPORT INFORMATION
  Report Type: Spontaneous
  Country: FR (occurrence: FR)
  Receive Date: 20200519
  Receipt Date: 20200519
  Transmission Date: 20200714
  Serious: Yes (Other)
  Sender: FDA-Public Use
  Company Number: FR-STALLERGENES SAS-2083946

PATIENT
  Age: 21 Year
  Sex: Male

DRUGS (2)
  1. ORALAIR [Suspect]
     Active Substance: ANTHOXANTHUM ODORATUM POLLEN\DACTYLIS GLOMERATA POLLEN\LOLIUM PERENNE POLLEN\PHLEUM PRATENSE POLLEN\POA PRATENSIS POLLEN
     Indication: HYPERSENSITIVITY
     Route: 060
     Dates: start: 2019
  2. STALORAL [Suspect]
     Active Substance: ALLERGENIC EXTRACTS
     Route: 060
     Dates: start: 2017

REACTIONS (4)
  - Obsessive-compulsive disorder [Not Recovered/Not Resolved]
  - Intentional product misuse [Not Recovered/Not Resolved]
  - Ankylosing spondylitis [Not Recovered/Not Resolved]
  - Contraindicated product administered [Not Recovered/Not Resolved]

NARRATIVE: CASE EVENT DATE: 201906
